FAERS Safety Report 6789938-8 (Version None)
Quarter: 2010Q2

REPORT INFORMATION
  Report Type: 
  Country: None (occurrence: None)
  Receive Date: 20100624
  Receipt Date: 20100621
  Transmission Date: 20101027
  Serious: Yes (Death)
  Sender: FDA-Public Use
  Company Number: JP-PFIZER INC-2010077219

PATIENT
  Age: 72 Year
  Sex: Female
  Weight: 40 kg

DRUGS (12)
  1. SILDENAFIL CITRATE [Suspect]
     Indication: HYPOVENTILATION
     Dosage: 20 MG, 3X/DAY
     Dates: start: 20081006
  2. CLEANAL [Concomitant]
     Dosage: UNK
     Route: 048
  3. MUCOSOLVAN [Concomitant]
     Dosage: UNK
     Route: 048
  4. JUVELA NICOTINATE [Concomitant]
     Dosage: UNK
     Route: 048
  5. PARIET [Concomitant]
     Dosage: UNK
     Route: 048
  6. BAKUMONDOUTO [Concomitant]
     Dosage: UNK
     Route: 048
  7. DORNER [Concomitant]
     Indication: PULMONARY HYPERTENSION
     Dosage: UNK
     Route: 048
  8. LASIX [Concomitant]
     Indication: PULMONARY HYPERTENSION
     Dosage: UNK
     Route: 048
  9. PREDONINE [Concomitant]
     Dosage: UNK
     Route: 048
  10. CYANOCOBALAMIN [Concomitant]
     Dosage: UNK
     Route: 048
  11. ZITHROMAX [Concomitant]
     Dosage: UNK
     Route: 048
  12. ALENDRONATE SODIUM [Concomitant]
     Dosage: UNK
     Route: 048

REACTIONS (1)
  - DEATH [None]
